FAERS Safety Report 17144423 (Version 11)
Quarter: 2024Q4

REPORT INFORMATION
  Report Type: Spontaneous
  Country: US (occurrence: US)
  Receive Date: 20191212
  Receipt Date: 20241220
  Transmission Date: 20250115
  Serious: No
  Sender: PFIZER
  Company Number: US-PFIZER INC-2019299148

PATIENT
  Age: 73 Year
  Sex: Male
  Weight: 136 kg

DRUGS (3)
  1. BOSULIF [Suspect]
     Active Substance: BOSUTINIB MONOHYDRATE
     Indication: Chronic myeloid leukaemia
     Dosage: 300 MG, DAILY (TAKE THREE TABLETS (300 MG) BY MOUTH DAILY)
     Route: 048
  2. BOSULIF [Suspect]
     Active Substance: BOSUTINIB MONOHYDRATE
     Dosage: 300 MG, 1X/DAY (TAKE 3 TABLETS IN THE MORNING)
     Route: 048
  3. BOSULIF [Suspect]
     Active Substance: BOSUTINIB MONOHYDRATE
     Dosage: 300 MG, DAILY (TAKE THREE TABLETS (300 MG) BY MOUTH DAILY)
     Route: 048

REACTIONS (3)
  - Abdominal distension [Unknown]
  - Oedema peripheral [Recovering/Resolving]
  - Diarrhoea [Unknown]
